FAERS Safety Report 14124538 (Version 11)
Quarter: 2018Q1

REPORT INFORMATION
  Report Type: Spontaneous
  Country: US (occurrence: US)
  Receive Date: 20171025
  Receipt Date: 20180327
  Transmission Date: 20180508
  Serious: No
  Sender: FDA-Public Use
  Company Number: US-PFIZER INC-2017458409

PATIENT
  Age: 55 Year
  Sex: Female
  Weight: 69 kg

DRUGS (4)
  1. IBRANCE [Suspect]
     Active Substance: PALBOCICLIB
     Dosage: UNK
     Dates: start: 20171018, end: 201710
  2. FASLODEX [Concomitant]
     Active Substance: FULVESTRANT
     Indication: BREAST CANCER METASTATIC
     Dosage: UNK
     Dates: start: 201703
  3. IBRANCE [Suspect]
     Active Substance: PALBOCICLIB
     Dosage: UNK
     Dates: start: 20171020, end: 20171022
  4. IBRANCE [Suspect]
     Active Substance: PALBOCICLIB
     Indication: BREAST CANCER METASTATIC
     Dosage: 125 MG, ONCE A DAY
     Route: 048
     Dates: start: 201703, end: 2017

REACTIONS (28)
  - Intentional product misuse [Unknown]
  - Blister [Unknown]
  - Lip blister [Not Recovered/Not Resolved]
  - Tongue erythema [Recovered/Resolved]
  - Swollen tongue [Recovered/Resolved]
  - Oral mucosal eruption [Recovered/Resolved]
  - Cystitis [Unknown]
  - Lip dry [Unknown]
  - Pharyngeal inflammation [Recovered/Resolved]
  - Pharyngeal oedema [Recovered/Resolved]
  - Ageusia [Not Recovered/Not Resolved]
  - Nasal inflammation [Recovered/Resolved]
  - Viral infection [Unknown]
  - Malaise [Unknown]
  - Candida infection [Unknown]
  - Apathy [Unknown]
  - Oral pain [Recovered/Resolved]
  - Pharyngeal erythema [Recovered/Resolved]
  - Oropharyngeal pain [Recovered/Resolved]
  - Dysphonia [Unknown]
  - Cheilitis [Not Recovered/Not Resolved]
  - Pyrexia [Unknown]
  - White blood cell count decreased [Unknown]
  - Hypogeusia [Not Recovered/Not Resolved]
  - Dysphagia [Recovered/Resolved]
  - Enlarged uvula [Recovered/Resolved]
  - Abdominal pain [Unknown]
  - Back pain [Unknown]

NARRATIVE: CASE EVENT DATE: 2017
